FAERS Safety Report 23207132 (Version 5)
Quarter: 2023Q4

REPORT INFORMATION
  Report Type: Report from Study
  Country: JP (occurrence: JP)
  Receive Date: 20231120
  Receipt Date: 20231206
  Transmission Date: 20240110
  Serious: Yes (Life-Threatening, Hospitalization)
  Sender: FDA-Public Use
  Company Number: JP-CHUGAI-2023040764AA

PATIENT
  Age: 69 Year
  Sex: Male
  Weight: 58.5 kg

DRUGS (7)
  1. TOCILIZUMAB [Suspect]
     Active Substance: TOCILIZUMAB
     Indication: Immune disorder prophylaxis
     Route: 065
     Dates: start: 20231016
  2. ATEZOLIZUMAB [Suspect]
     Active Substance: ATEZOLIZUMAB
     Indication: Hepatocellular carcinoma
     Dosage: LAST DOSE OF 31/OCT/2023 11:40
     Route: 065
     Dates: start: 20231031, end: 20231031
  3. BEVACIZUMAB [Suspect]
     Active Substance: BEVACIZUMAB
     Indication: Hepatocellular carcinoma
     Route: 065
     Dates: start: 20231031, end: 20231031
  4. LANSOPRAZOLE [Concomitant]
     Active Substance: LANSOPRAZOLE
     Indication: Gastrointestinal disorder prophylaxis
     Dosage: FORM: TABLET, ORALLY DISINTEGRATING?START BEFORE CLINICAL TRIAL
     Route: 048
  5. MOSAPRIDE CITRATE [Concomitant]
     Active Substance: MOSAPRIDE CITRATE
     Indication: Gastritis
     Dosage: START BEFORE CLINICAL TRIAL
     Route: 048
  6. BEZAFIBRATE [Concomitant]
     Active Substance: BEZAFIBRATE
     Indication: Hyperlipidaemia
     Dosage: SLOW RELEASE TABLET?START BEFORE CLINICAL TRIAL?BID
     Route: 048
  7. MAGNESIUM OXIDE [Concomitant]
     Active Substance: MAGNESIUM OXIDE
     Indication: Faecal management
     Dosage: TID
     Route: 048
     Dates: start: 20231108

REACTIONS (1)
  - Liver carcinoma ruptured [Recovered/Resolved]

NARRATIVE: CASE EVENT DATE: 20231111
